FAERS Safety Report 8357826-1 (Version None)
Quarter: 2012Q2

REPORT INFORMATION
  Report Type: 
  Country: None (occurrence: None)
  Receive Date: 20120514
  Receipt Date: 20110608
  Transmission Date: 20120825
  Serious: Yes (Hospitalization, Other)
  Sender: FDA-Public Use
  Company Number: US-ALEXION-A201100384

PATIENT
  Sex: Male

DRUGS (3)
  1. SOLIRIS [Suspect]
     Dosage: 900 MG, Q2W
     Dates: start: 20080606, end: 20110201
  2. SOLIRIS [Suspect]
     Indication: PAROXYSMAL NOCTURNAL HAEMOGLOBINURIA
     Dosage: 600 MG, QW
     Route: 042
     Dates: start: 20080509, end: 20080530
  3. SOLIRIS [Suspect]
     Dosage: 900 MG, Q2W
     Dates: start: 20110310, end: 20110324

REACTIONS (11)
  - CONDITION AGGRAVATED [None]
  - SWELLING [None]
  - NODULE [None]
  - PYREXIA [None]
  - APLASTIC ANAEMIA [None]
  - PLATELET COUNT DECREASED [None]
  - WHITE BLOOD CELL COUNT DECREASED [None]
  - TOOTH INFECTION [None]
  - INFECTION [None]
  - HAEMOGLOBIN DECREASED [None]
  - SINUSITIS [None]
